FAERS Safety Report 8317597-1 (Version None)
Quarter: 2012Q2

REPORT INFORMATION
  Report Type: 
  Country: None (occurrence: None)
  Receive Date: 20120427
  Receipt Date: 20110616
  Transmission Date: 20120825
  Serious: No
  Sender: FDA-Public Use
  Company Number: US-GLAXOSMITHKLINE-A0932960A

PATIENT
  Age: 58 Year
  Sex: Female

DRUGS (4)
  1. ZOFRAN [Suspect]
     Indication: PRODUCT USED FOR UNKNOWN INDICATION
     Dosage: 8MG UNKNOWN
     Route: 048
  2. ADVAIR DISKUS 100/50 [Suspect]
     Route: 055
  3. AVANDAMET [Suspect]
     Indication: PRODUCT USED FOR UNKNOWN INDICATION
     Route: 048
  4. CHEMOTHERAPY [Suspect]

REACTIONS (7)
  - NASOPHARYNGITIS [None]
  - NAUSEA [None]
  - MALAISE [None]
  - ILL-DEFINED DISORDER [None]
  - VOMITING [None]
  - COUGH [None]
  - DRUG INEFFECTIVE [None]
